APPROVED DRUG PRODUCT: LOPERAMIDE HYDROCHLORIDE
Active Ingredient: LOPERAMIDE HYDROCHLORIDE
Strength: 2MG
Dosage Form/Route: CAPSULE;ORAL
Application: N021855 | Product #002
Applicant: BIONPHARMA INC
Approved: Aug 4, 2005 | RLD: Yes | RS: Yes | Type: OTC